FAERS Safety Report 19744476 (Version 1)
Quarter: 2021Q3

REPORT INFORMATION
  Report Type: Spontaneous
  Country: US (occurrence: US)
  Receive Date: 20210820
  Receipt Date: 20210820
  Transmission Date: 20211014
  Serious: Yes (Other)
  Sender: FDA-Public Use
  Company Number: None

PATIENT
  Age: 57 Year
  Sex: Male
  Weight: 78.75 kg

DRUGS (14)
  1. YELLOW DOCK [Concomitant]
     Active Substance: RUMEX CRISPUS POLLEN
  2. IBUPROFEN. [Concomitant]
     Active Substance: IBUPROFEN
  3. VITAMIN D [Concomitant]
     Active Substance: VITAMIN D NOS
  4. ZINC. [Concomitant]
     Active Substance: ZINC
  5. PREDNISONE 20 MG TABLETS [Suspect]
     Active Substance: PREDNISONE
     Indication: BACK PAIN
     Dosage: ?          QUANTITY:18 DF DOSAGE FORM;?
     Route: 048
     Dates: start: 20210813, end: 20210817
  6. CHLORTABS [Concomitant]
     Active Substance: CHLORPHENIRAMINE MALEATE
  7. MILK THISTLE [Concomitant]
     Active Substance: DIETARY SUPPLEMENT\HERBALS\MILK THISTLE
  8. PREDNISONE 20 MG TABLETS [Suspect]
     Active Substance: PREDNISONE
     Indication: NEURALGIA
     Route: 048
     Dates: start: 20210813, end: 20210817
  9. GINGER. [Concomitant]
     Active Substance: GINGER
  10. DANDELION [Concomitant]
     Active Substance: TARAXACUM OFFICINALE POLLEN
  11. BENADRYL [Concomitant]
     Active Substance: DIPHENHYDRAMINE HYDROCHLORIDE
  12. ACETAMINOPHEN. [Concomitant]
     Active Substance: ACETAMINOPHEN
  13. FENUGREEK [Concomitant]
     Active Substance: FENUGREEK SEED
  14. SPRSAPARILLA [Concomitant]

REACTIONS (1)
  - Depression [None]

NARRATIVE: CASE EVENT DATE: 20210817
